FAERS Safety Report 5503550-X (Version None)
Quarter: 2007Q4

REPORT INFORMATION
  Report Type: 
  Country: None (occurrence: None)
  Receive Date: 20071029
  Receipt Date: 20071015
  Transmission Date: 20080405
  Serious: Yes (Hospitalization, Other)
  Sender: FDA-Public Use
  Company Number: 1997000737-FJ

PATIENT
  Age: 53 Year
  Sex: Female
  Weight: 43.5 kg

DRUGS (14)
  1. TACROLIMUS [Suspect]
     Indication: RENAL TRANSPLANT
     Dosage: SEE IMAGE
     Route: 048
     Dates: start: 19960716, end: 19960717
  2. TACROLIMUS [Suspect]
     Indication: RENAL TRANSPLANT
     Dosage: SEE IMAGE
     Route: 048
     Dates: start: 19960720, end: 19960721
  3. TACROLIMUS [Suspect]
     Indication: RENAL TRANSPLANT
     Dosage: SEE IMAGE
     Route: 048
     Dates: start: 19960722, end: 19960723
  4. TACROLIMUS [Suspect]
     Indication: RENAL TRANSPLANT
     Dosage: SEE IMAGE
     Route: 048
     Dates: start: 19960724, end: 19960724
  5. TACROLIMUS [Suspect]
     Indication: RENAL TRANSPLANT
     Dosage: SEE IMAGE
     Route: 048
     Dates: start: 19960725, end: 19960801
  6. TACROLIMUS [Suspect]
     Indication: RENAL TRANSPLANT
     Dosage: SEE IMAGE
     Route: 048
     Dates: start: 19960802, end: 19960815
  7. TACROLIMUS [Suspect]
     Indication: RENAL TRANSPLANT
     Dosage: SEE IMAGE
     Route: 048
     Dates: start: 19960816, end: 19960916
  8. TACROLIMUS [Suspect]
     Indication: RENAL TRANSPLANT
     Dosage: SEE IMAGE
     Route: 048
     Dates: start: 19960917, end: 19961013
  9. TACROLIMUS [Suspect]
     Indication: RENAL TRANSPLANT
     Dosage: SEE IMAGE
     Route: 048
     Dates: start: 19961014, end: 19961215
  10. TACROLIMUS [Suspect]
     Indication: RENAL TRANSPLANT
     Dosage: SEE IMAGE
     Route: 048
     Dates: start: 19961216
  11. PROGRAF [Suspect]
     Indication: RENAL TRANSPLANT
     Dosage: 24 MG, IV NOS
     Route: 042
     Dates: start: 19960718, end: 19960719
  12. METHYLPREDNISOLONE [Concomitant]
  13. PREDNISOLONE [Concomitant]
  14. AZATHIOPRINE [Concomitant]

REACTIONS (6)
  - BLOOD LACTATE DEHYDROGENASE INCREASED [None]
  - CATARACT [None]
  - DIABETES MELLITUS [None]
  - HYPERCHOLESTEROLAEMIA [None]
  - HYPERTRIGLYCERIDAEMIA [None]
  - OSTEONECROSIS [None]
